FAERS Safety Report 17941409 (Version 1)
Quarter: 2020Q2

REPORT INFORMATION
  Report Type: Spontaneous
  Country: CN (occurrence: CN)
  Receive Date: 20200624
  Receipt Date: 20200624
  Transmission Date: 20200714
  Serious: Yes (Other)
  Sender: FDA-Public Use
  Company Number: CN-PFIZER INC-2020239887

PATIENT
  Age: 37 Year
  Sex: Female
  Weight: 54 kg

DRUGS (6)
  1. GLUCOSE [Concomitant]
     Active Substance: DEXTROSE
     Indication: VEHICLE SOLUTION USE
     Dosage: 250 ML, 1X/DAY
     Route: 041
     Dates: start: 20200511, end: 20200513
  2. CYTOSAR [Suspect]
     Active Substance: CYTARABINE
     Dosage: 100 MG, 1X/DAY
     Route: 058
     Dates: start: 20200511, end: 20200516
  3. AI NUO NING [Suspect]
     Active Substance: IDARUBICIN HYDROCHLORIDE
     Indication: CHEMOTHERAPY
     Dosage: 10 MG, 1X/DAY
     Route: 041
     Dates: start: 20200511, end: 20200513
  4. SODIUM CHLORIDE. [Concomitant]
     Active Substance: SODIUM CHLORIDE
     Indication: VEHICLE SOLUTION USE
     Dosage: 1 MG/L, 1X/DAY
     Route: 058
     Dates: start: 20200511, end: 20200516
  5. CYTOSAR [Suspect]
     Active Substance: CYTARABINE
     Indication: CHEMOTHERAPY
     Dosage: 100 MG, 1X/DAY
     Route: 041
     Dates: start: 20200511, end: 20200516
  6. SODIUM CHLORIDE. [Concomitant]
     Active Substance: SODIUM CHLORIDE
     Indication: VEHICLE SOLUTION USE
     Dosage: 100 ML, 1X/DAY
     Route: 041
     Dates: start: 20200511, end: 20200516

REACTIONS (3)
  - Neutrophil count increased [Recovering/Resolving]
  - White blood cell count decreased [Recovering/Resolving]
  - Platelet count decreased [Recovering/Resolving]

NARRATIVE: CASE EVENT DATE: 20200519
